FAERS Safety Report 23748173 (Version 3)
Quarter: 2024Q2

REPORT INFORMATION
  Report Type: Report from Study
  Country: MX (occurrence: MX)
  Receive Date: 20240416
  Receipt Date: 20240527
  Transmission Date: 20240716
  Serious: Yes (Other)
  Sender: FDA-Public Use
  Company Number: MX-002147023-NVSC2024MX039471

PATIENT
  Sex: Female
  Weight: 58.5 kg

DRUGS (5)
  1. KISQALI [Suspect]
     Active Substance: RIBOCICLIB
     Indication: Breast cancer
     Dosage: 600 MG, QD (3 OF 200)
     Route: 048
  2. KISQALI [Suspect]
     Active Substance: RIBOCICLIB
     Dosage: 600 MG, QD (3 X 200 MG, ONCE A DAY/ EVERY NIGHT)
     Route: 048
  3. KISQALI [Suspect]
     Active Substance: RIBOCICLIB
     Dosage: UNK
     Route: 048
  4. KISQALI [Suspect]
     Active Substance: RIBOCICLIB
     Dosage: 600 MG, QD (3 OF 200 MG, AT NIGHT/ONCE DAILY)
     Route: 048
  5. LETROZOLE [Suspect]
     Active Substance: LETROZOLE
     Indication: Product used for unknown indication
     Dosage: UNK
     Route: 065

REACTIONS (23)
  - Metastases to liver [Unknown]
  - Neoplasm [Unknown]
  - Immunodeficiency [Unknown]
  - Dehydration [Unknown]
  - Decreased appetite [Unknown]
  - Weight decreased [Unknown]
  - Malaise [Unknown]
  - Sleep disorder [Unknown]
  - Somnolence [Unknown]
  - Depression [Unknown]
  - Illness [Unknown]
  - Influenza [Unknown]
  - Pain [Unknown]
  - COVID-19 [Unknown]
  - Urinary tract infection [Recovering/Resolving]
  - Discomfort [Unknown]
  - Frustration tolerance decreased [Not Recovered/Not Resolved]
  - Feeling guilty [Not Recovered/Not Resolved]
  - Nervousness [Unknown]
  - Hypertension [Unknown]
  - Cold sweat [Unknown]
  - Anxiety [Unknown]
  - Crying [Unknown]

NARRATIVE: CASE EVENT DATE: 20220101
